FAERS Safety Report 6725949-6 (Version None)
Quarter: 2010Q2

REPORT INFORMATION
  Report Type: 
  Country: None (occurrence: None)
  Receive Date: 20100512
  Receipt Date: 20100501
  Transmission Date: 20101027
  Serious: Yes (Other)
  Sender: FDA-Public Use
  Company Number: 1000013761

PATIENT
  Age: 38 Year
  Sex: Female

DRUGS (15)
  1. ESCITALOPRAM [Suspect]
     Indication: ANXIETY
     Dosage: 20 MG (20 MG,1 IN 1 D),ORAL
     Route: 048
  2. ESCITALOPRAM [Suspect]
     Indication: DEPRESSION
     Dosage: 20 MG (20 MG,1 IN 1 D),ORAL
     Route: 048
  3. ESCITALOPRAM [Suspect]
     Indication: SLEEP DISORDER
     Dosage: 20 MG (20 MG,1 IN 1 D),ORAL
     Route: 048
  4. ESCITALOPRAM [Suspect]
     Indication: ANXIETY
     Dosage: 10 MG (10 MG,1 IN 1 D),ORAL
     Route: 048
  5. ESCITALOPRAM [Suspect]
     Indication: DEPRESSION
     Dosage: 10 MG (10 MG,1 IN 1 D),ORAL
     Route: 048
  6. ESCITALOPRAM [Suspect]
     Indication: SLEEP DISORDER
     Dosage: 10 MG (10 MG,1 IN 1 D),ORAL
     Route: 048
  7. ESCITALOPRAM [Suspect]
     Indication: ANXIETY
     Dosage: 30 MG (30 MG,1 IN 1 D),ORAL
     Route: 048
  8. ESCITALOPRAM [Suspect]
     Indication: DEPRESSION
     Dosage: 30 MG (30 MG,1 IN 1 D),ORAL
     Route: 048
  9. ESCITALOPRAM [Suspect]
     Indication: SLEEP DISORDER
     Dosage: 30 MG (30 MG,1 IN 1 D),ORAL
     Route: 048
  10. ESCITALOPRAM [Suspect]
     Indication: ANXIETY
     Dosage: 20 MG (20 MG,1 IN 1 D),ORAL ; 40 MG (40 MG,1 IN 1 D),ORAL
     Route: 048
  11. ESCITALOPRAM [Suspect]
     Indication: DEPRESSION
     Dosage: 20 MG (20 MG,1 IN 1 D),ORAL ; 40 MG (40 MG,1 IN 1 D),ORAL
     Route: 048
  12. ESCITALOPRAM [Suspect]
     Indication: SLEEP DISORDER
     Dosage: 20 MG (20 MG,1 IN 1 D),ORAL ; 40 MG (40 MG,1 IN 1 D),ORAL
     Route: 048
  13. ESCITALOPRAM [Suspect]
     Indication: ANXIETY
     Dosage: ORAL
     Route: 048
  14. ESCITALOPRAM [Suspect]
     Indication: DEPRESSION
     Dosage: ORAL
     Route: 048
  15. ESCITALOPRAM [Suspect]
     Indication: SLEEP DISORDER
     Dosage: ORAL
     Route: 048

REACTIONS (8)
  - AGITATION [None]
  - ANXIETY [None]
  - BURNING SENSATION [None]
  - DRUG INEFFECTIVE [None]
  - INSOMNIA [None]
  - OFF LABEL USE [None]
  - OVERDOSE [None]
  - VOMITING [None]
